FAERS Safety Report 11741358 (Version 2)
Quarter: 2016Q3

REPORT INFORMATION
  Report Type: Report from Study
  Country: FR (occurrence: FR)
  Receive Date: 20151116
  Receipt Date: 20160725
  Transmission Date: 20161109
  Serious: Yes (Other)
  Sender: FDA-Public Use
  Company Number: FR-ROCHE-1659318

PATIENT
  Age: 55 Year
  Sex: Female
  Weight: 58 kg

DRUGS (7)
  1. METHYLPREDNISOLON [Concomitant]
     Active Substance: METHYLPREDNISOLONE
     Indication: PROPHYLAXIS
     Route: 042
     Dates: start: 20150615, end: 20151117
  2. LOXEN (FRANCE) [Concomitant]
     Active Substance: NICARDIPINE HYDROCHLORIDE
     Route: 048
     Dates: start: 20151019, end: 20151102
  3. BEVACIZUMAB [Suspect]
     Active Substance: BEVACIZUMAB
     Indication: OVARIAN CANCER RECURRENT
     Dosage: DATE OF LAST DOSE PRIOR TO SAE : 05/OCT/2015, DAY 1 AND DAY 15
     Route: 042
     Dates: start: 20150615, end: 20151102
  4. PEGYLATED LIPOSOMAL DOXORUBICIN [Suspect]
     Active Substance: DOXORUBICIN
     Indication: OVARIAN CANCER RECURRENT
     Dosage: DAY 1?DATE OF LAST DOSE PRIOR TO SAE : 05/OCT/2015
     Route: 042
     Dates: start: 20150615, end: 20151117
  5. ONDASETRON [Concomitant]
     Active Substance: ONDANSETRON
     Route: 042
     Dates: start: 20150615, end: 20151117
  6. NEULASTA [Concomitant]
     Active Substance: PEGFILGRASTIM
     Indication: PROPHYLAXIS
     Route: 042
     Dates: start: 20150616, end: 20151006
  7. CARBOPLATIN. [Suspect]
     Active Substance: CARBOPLATIN
     Indication: OVARIAN CANCER RECURRENT
     Dosage: DAY 1, ?DATE OF LAST DOSE PRIOR TE SAE : 05/OCT/2015
     Route: 042
     Dates: start: 20150615, end: 20151117

REACTIONS (2)
  - Left ventricular dysfunction [Recovered/Resolved]
  - Cardiotoxicity [Recovered/Resolved]

NARRATIVE: CASE EVENT DATE: 20151023
